FAERS Safety Report 23856778 (Version 1)
Quarter: 2024Q2

REPORT INFORMATION
  Report Type: Report from Study
  Country: US (occurrence: US)
  Receive Date: 20240515
  Receipt Date: 20240515
  Transmission Date: 20240716
  Serious: Yes (Hospitalization)
  Sender: FDA-Public Use
  Company Number: US-SHIRE-US202014990

PATIENT
  Sex: Female

DRUGS (2)
  1. HUMAN IMMUNOGLOBULIN G [Suspect]
     Active Substance: HUMAN IMMUNOGLOBULIN G
     Indication: Immunodeficiency common variable
     Dosage: UNK
     Route: 042
  2. HUMAN IMMUNOGLOBULIN G [Suspect]
     Active Substance: HUMAN IMMUNOGLOBULIN G
     Indication: Primary immunodeficiency syndrome

REACTIONS (11)
  - Stomach mass [Unknown]
  - Abdominal pain upper [Unknown]
  - Speech disorder [Unknown]
  - Dysphonia [Unknown]
  - Alcohol withdrawal syndrome [Unknown]
  - Drug withdrawal syndrome [Unknown]
  - Insurance issue [Unknown]
  - Illness [Unknown]
  - Depression [Unknown]
  - Procrastination [Unknown]
  - Inappropriate schedule of product administration [Unknown]

NARRATIVE: CASE EVENT DATE: 20190101
